FAERS Safety Report 9137781 (Version 2)
Quarter: 2013Q3

REPORT INFORMATION
  Report Type: Spontaneous
  Country: AU (occurrence: AU)
  Receive Date: 20130304
  Receipt Date: 20130812
  Transmission Date: 20140515
  Serious: Yes (Other)
  Sender: FDA-Public Use
  Company Number: AU-PFIZER INC-2013071175

PATIENT
  Sex: Female

DRUGS (2)
  1. XALACOM [Suspect]
  2. PRISTIQ [Interacting]

REACTIONS (5)
  - Intraocular pressure increased [Unknown]
  - Drug dispensing error [Unknown]
  - Drug interaction [Unknown]
  - Product quality issue [Unknown]
  - Drug ineffective [Unknown]
